FAERS Safety Report 14677836 (Version 1)
Quarter: 2018Q1

REPORT INFORMATION
  Report Type: Report from Study
  Country: None (occurrence: US)
  Receive Date: 20180326
  Receipt Date: 20180326
  Transmission Date: 20180509
  Serious: Yes (Hospitalization)
  Sender: FDA-Public Use
  Company Number: US-ABBVIE-18K-163-2296917-00

PATIENT
  Age: 43 Year
  Sex: Female

DRUGS (1)
  1. HUMIRA [Suspect]
     Active Substance: ADALIMUMAB
     Indication: PSORIASIS
     Dosage: DAY 1
     Route: 058
     Dates: start: 20180307, end: 20180307

REACTIONS (7)
  - Wound secretion [Unknown]
  - Psoriasis [Unknown]
  - Back injury [Unknown]
  - Pain of skin [Unknown]
  - Neck injury [Unknown]
  - Adverse drug reaction [Unknown]
  - Wound [Unknown]

NARRATIVE: CASE EVENT DATE: 201803
